FAERS Safety Report 7411192-4 (Version None)
Quarter: 2011Q2

REPORT INFORMATION
  Report Type: 
  Country: None (occurrence: None)
  Receive Date: 20110413
  Receipt Date: 20110406
  Transmission Date: 20111010
  Serious: Yes (Death)
  Sender: FDA-Public Use
  Company Number: IR-GENZYME-FLUD-1001045

PATIENT

DRUGS (11)
  1. FLUDARA [Suspect]
     Indication: STEM CELL TRANSPLANT
     Dosage: 30 MG/M2, QD X 5 DAYS
     Route: 065
  2. THYMOGLOBULIN [Suspect]
     Indication: CONGENITAL APLASTIC ANAEMIA
  3. FLUCONAZOLE [Concomitant]
     Indication: ANTIFUNGAL PROPHYLAXIS
     Dosage: UNK
     Route: 065
  4. CYCLOSPORINE [Concomitant]
     Indication: PROPHYLAXIS AGAINST GRAFT VERSUS HOST DISEASE
  5. ACYCLOVIR [Concomitant]
     Indication: ANTIVIRAL PROPHYLAXIS
     Dosage: UNK
     Route: 065
  6. ACYCLOVIR [Concomitant]
     Indication: HERPES ZOSTER
  7. CYCLOPHOSPHAMIDE [Suspect]
     Indication: CONGENITAL APLASTIC ANAEMIA
  8. TRIMETHOPRIM + SULFAMETHOXAZOLE [Concomitant]
     Indication: ANTIFUNGAL PROPHYLAXIS
     Dosage: UNK
     Route: 065
  9. FLUDARA [Suspect]
     Indication: CONGENITAL APLASTIC ANAEMIA
  10. THYMOGLOBULIN [Suspect]
     Indication: STEM CELL TRANSPLANT
     Dosage: 10 MG/KG, QD X 4 DAYS
     Route: 065
  11. CYCLOPHOSPHAMIDE [Suspect]
     Indication: STEM CELL TRANSPLANT
     Dosage: 10 MG/KG, QD X 2 DAYS
     Route: 065

REACTIONS (1)
  - TRANSPLANT FAILURE [None]
